FAERS Safety Report 12804865 (Version 1)
Quarter: 2016Q4

REPORT INFORMATION
  Report Type: Spontaneous
  Country: GB (occurrence: GB)
  Receive Date: 20161003
  Receipt Date: 20161003
  Transmission Date: 20170207
  Serious: Yes (Other)
  Sender: FDA-Public Use
  Company Number: GB-JNJFOC-20160926500

PATIENT
  Age: 89 Year
  Sex: Female
  Weight: 76 kg

DRUGS (13)
  1. BUPRENORPHINE. [Concomitant]
     Active Substance: BUPRENORPHINE
     Indication: PAIN
     Dosage: APPLY ONE EVERY 7 DAYS AS NEEDED (1 DOSE (UNIT UNSPECIFIED), AS REQUIRED)
     Route: 065
     Dates: start: 20151201
  2. INDAPAMIDE. [Concomitant]
     Active Substance: INDAPAMIDE
     Indication: PRODUCT USED FOR UNKNOWN INDICATION
     Dosage: EACH MORNINGDOSE 1 DOSE (UNIT UNSPECIFIED)??CUMULATIVE DOSE TO FIRST REACTION: 294.958333
     Route: 065
     Dates: start: 20151201
  3. BISOPROLOL [Concomitant]
     Active Substance: BISOPROLOL
     Indication: PRODUCT USED FOR UNKNOWN INDICATION
     Dosage: CUMULATIVE DOSE:294.958333 DOSE: 1.0 (UNIT UNSPECIFIED)
     Route: 065
     Dates: start: 20151201
  4. LOSARTAN. [Concomitant]
     Active Substance: LOSARTAN
     Indication: PRODUCT USED FOR UNKNOWN INDICATION
     Dosage: CUMULATIVE DOSE: 294.958333, DOSE 1.0 (UNIT UNSPECIFIED)
     Route: 065
     Dates: start: 20151201
  5. SENNA [Concomitant]
     Active Substance: SENNA LEAF\SENNOSIDES\SENNOSIDES A AND B
     Indication: PRODUCT USED FOR UNKNOWN INDICATION
     Dosage: TAKE 1 OR 2 AT NIGHT
     Route: 065
     Dates: start: 20151201
  6. IBUPROFEN. [Suspect]
     Active Substance: IBUPROFEN
     Route: 065
  7. LEVOTHYROXINE. [Concomitant]
     Active Substance: LEVOTHYROXINE
     Indication: PRODUCT USED FOR UNKNOWN INDICATION
     Dosage: EACH MORNING,CUMULATIVE DOSE :200.958333 DOSE 1 (UNIT UNSPECIFIED)
     Route: 065
     Dates: start: 20160304
  8. FLEXITOL HEEL [Concomitant]
     Indication: PRODUCT USED FOR UNKNOWN INDICATION
     Dosage: CUMULATIVE DOSE: 589.916666, DOSE 1 (UNIT UNSPECIFIED)
     Route: 065
     Dates: start: 20151201
  9. IBUPROFEN. [Suspect]
     Active Substance: IBUPROFEN
     Indication: PRODUCT USED FOR UNKNOWN INDICATION
     Route: 065
     Dates: start: 20160921
  10. BUPRENORPHINE. [Concomitant]
     Active Substance: BUPRENORPHINE
     Indication: PAIN
     Dosage: APPLY ONE EVERY 7 DAYS AS NEEDED (1 DOSE AS REQUIRED)
     Route: 065
     Dates: start: 20160919
  11. FENBID [Concomitant]
     Active Substance: IBUPROFEN
     Indication: PRODUCT USED FOR UNKNOWN INDICATION
     Dosage: CUMULATIVE DOSE: 340.0DOSE 1.0 (UNIT UNSPECIFIED)
     Route: 065
     Dates: start: 20160404
  12. LACTULOSE. [Concomitant]
     Active Substance: LACTULOSE
     Indication: PRODUCT USED FOR UNKNOWN INDICATION
     Dosage: DURATION OF DRUG ADMINISTRATION: 30 DAYS
     Route: 065
     Dates: start: 20160722, end: 20160821
  13. OMEPRAZOLE. [Concomitant]
     Active Substance: OMEPRAZOLE
     Indication: PRODUCT USED FOR UNKNOWN INDICATION
     Dosage: CUMULATIVE DOSE: 8.0, DOSE 1 (UNIT UNSPECIFIED)
     Route: 065
     Dates: start: 20160913

REACTIONS (1)
  - Acute kidney injury [Unknown]

NARRATIVE: CASE EVENT DATE: 20160921
